FAERS Safety Report 9144174 (Version 1)
Quarter: 2013Q1

REPORT INFORMATION
  Report Type: Spontaneous
  Country: US (occurrence: US)
  Receive Date: 20130306
  Receipt Date: 20130306
  Transmission Date: 20140127
  Serious: No
  Sender: FDA-Public Use
  Company Number: US-ASTRAZENECA-2013SE12083

PATIENT
  Age: 38 Year
  Sex: Male
  Weight: 102.1 kg

DRUGS (7)
  1. SEROQUEL [Suspect]
     Indication: BIPOLAR DISORDER
     Route: 048
     Dates: start: 201008, end: 201208
  2. SEROQUEL [Suspect]
     Indication: DEPRESSION
     Route: 048
     Dates: start: 201008, end: 201208
  3. SEROQUEL [Suspect]
     Indication: BIPOLAR DISORDER
     Route: 048
     Dates: start: 201209, end: 201301
  4. SEROQUEL [Suspect]
     Indication: DEPRESSION
     Route: 048
     Dates: start: 201209, end: 201301
  5. HCTZ [Concomitant]
     Indication: BLOOD PRESSURE ABNORMAL
     Dates: start: 2010
  6. LITHIUM [Concomitant]
     Indication: AFFECTIVE DISORDER
     Dosage: THREE TIMES A DAY
     Dates: start: 2012
  7. TRAZADONE [Concomitant]
     Indication: SLEEP DISORDER

REACTIONS (5)
  - Middle insomnia [Not Recovered/Not Resolved]
  - Tachyphrenia [Not Recovered/Not Resolved]
  - Alcohol abuse [Not Recovered/Not Resolved]
  - Therapeutic response unexpected [Not Recovered/Not Resolved]
  - Intentional drug misuse [Unknown]
